FAERS Safety Report 13953049 (Version 1)
Quarter: 2017Q3

REPORT INFORMATION
  Report Type: Spontaneous
  Country: US (occurrence: US)
  Receive Date: 20170911
  Receipt Date: 20170911
  Transmission Date: 20171128
  Serious: No
  Sender: FDA-Public Use
  Company Number: US-TEVA-2016-17148

PATIENT
  Age: 53 Year
  Sex: Female

DRUGS (2)
  1. FENTANYL. [Suspect]
     Active Substance: FENTANYL
     Indication: PAIN
     Route: 062
     Dates: start: 20160701, end: 20160701
  2. FENTANYL. [Suspect]
     Active Substance: FENTANYL
     Indication: ARTHRITIS
     Route: 062
     Dates: start: 20160701, end: 20160701

REACTIONS (5)
  - Scratch [Unknown]
  - Application site pruritus [Unknown]
  - Application site scab [Unknown]
  - Application site bruise [Unknown]
  - Product adhesion issue [Unknown]
